FAERS Safety Report 4682741-4 (Version None)
Quarter: 2005Q2

REPORT INFORMATION
  Report Type: 
  Country: None (occurrence: None)
  Receive Date: 20050606
  Receipt Date: 20050526
  Transmission Date: 20051028
  Serious: Yes (Other)
  Sender: FDA-Public Use
  Company Number: US-JNJFOC-20050600151

PATIENT
  Sex: Female
  Weight: 131.54 kg

DRUGS (3)
  1. PEPCID AC [Suspect]
     Route: 049
  2. PEPCID AC [Suspect]
     Route: 049
  3. INHALERS [Concomitant]

REACTIONS (3)
  - BURNING SENSATION [None]
  - HYPERSENSITIVITY [None]
  - TREMOR [None]
